FAERS Safety Report 13528119 (Version 2)
Quarter: 2017Q3

REPORT INFORMATION
  Report Type: Spontaneous
  Country: US (occurrence: US)
  Receive Date: 20170509
  Receipt Date: 20170705
  Transmission Date: 20171127
  Serious: Yes (Hospitalization, Other)
  Sender: FDA-Public Use
  Company Number: US-TEVA-766132USA

PATIENT
  Sex: Female

DRUGS (3)
  1. BUDESONIDE. [Suspect]
     Active Substance: BUDESONIDE
     Indication: BRONCHITIS
     Dosage: 0.23 MG/2 ML
  2. BUDESONIDE. [Suspect]
     Active Substance: BUDESONIDE
  3. PERFOROMIST [Suspect]
     Active Substance: FORMOTEROL FUMARATE DIHYDRATE
     Route: 065

REACTIONS (4)
  - Cardiac failure [Unknown]
  - Fluid retention [Unknown]
  - Product use issue [Unknown]
  - Drug ineffective [Unknown]
